FAERS Safety Report 4846467-6 (Version None)
Quarter: 2005Q4

REPORT INFORMATION
  Report Type: 
  Country: None (occurrence: None)
  Receive Date: 20051202
  Receipt Date: 20051118
  Transmission Date: 20060501
  Serious: Yes (Hospitalization, Other)
  Sender: FDA-Public Use
  Company Number: KII-2005-0019847

PATIENT
  Age: 34 Year
  Sex: Male

DRUGS (4)
  1. OXYCONTIN [Suspect]
     Indication: INTENTIONAL DRUG MISUSE
     Dosage: ORAL
     Route: 048
  2. AMFETAMINE (AMFETAMINE) [Suspect]
  3. BENZODIAZEPINE DERIVATIVES() [Suspect]
  4. TETRAHYDROCANNABINOL (TETRAHYDROCANNABINOL) [Suspect]
     Indication: INTENTIONAL DRUG MISUSE

REACTIONS (11)
  - ASPIRATION [None]
  - BLOOD CREATINE PHOSPHOKINASE INCREASED [None]
  - BLOOD PRESSURE DECREASED [None]
  - HEPATIC FAILURE [None]
  - HYPOXIA [None]
  - MENTAL STATUS CHANGES [None]
  - POLYSUBSTANCE ABUSE [None]
  - RENAL FAILURE [None]
  - RESPIRATORY FAILURE [None]
  - SOMNOLENCE [None]
  - WHITE BLOOD CELL COUNT ABNORMAL [None]
